FAERS Safety Report 7588610-4 (Version None)
Quarter: 2011Q3

REPORT INFORMATION
  Report Type: 
  Country: None (occurrence: None)
  Receive Date: 20110705
  Receipt Date: 20110620
  Transmission Date: 20111222
  Serious: Yes (Hospitalization, Disabling)
  Sender: FDA-Public Use
  Company Number: US-JNJFOC-20110612886

PATIENT

DRUGS (7)
  1. ACE INHIBITORS [Concomitant]
     Route: 065
  2. ASPIRIN [Concomitant]
     Route: 065
  3. PROTON PUMP INHIBITORS [Concomitant]
     Route: 065
  4. BIVALIRUDIN [Suspect]
     Indication: PRODUCT USED FOR UNKNOWN INDICATION
     Route: 065
     Dates: start: 20110428
  5. ABCIXIMAB [Suspect]
     Indication: PRODUCT USED FOR UNKNOWN INDICATION
     Route: 065
     Dates: start: 20110428
  6. BETA BLOCKING AGENTS [Concomitant]
     Route: 065
  7. CLOPIDOGREL [Concomitant]
     Route: 065

REACTIONS (1)
  - CEREBROVASCULAR ACCIDENT [None]
